FAERS Safety Report 8853461 (Version 1)
Quarter: 2012Q4

REPORT INFORMATION
  Report Type: 
  Country: US (occurrence: US)
  Receive Date: 20121022
  Receipt Date: 20121022
  Transmission Date: 20130627
  Serious: Yes (Death)
  Sender: FDA-Public Use
  Company Number: US-ELI_LILLY_AND_COMPANY-US201210005750

PATIENT
  Sex: Male

DRUGS (2)
  1. GEMZAR [Suspect]
     Indication: LUNG NEOPLASM
     Dosage: 1748 mg, unknown
     Route: 065
     Dates: start: 20111025, end: 20120131
  2. ONDASETRON [Concomitant]

REACTIONS (1)
  - Death [Fatal]
